FAERS Safety Report 21962178 (Version 2)
Quarter: 2023Q1

REPORT INFORMATION
  Report Type: Spontaneous
  Country: ES (occurrence: ES)
  Receive Date: 20230207
  Receipt Date: 20230208
  Transmission Date: 20230418
  Serious: Yes (Life-Threatening, Other)
  Sender: FDA-Public Use
  Company Number: None

PATIENT
  Age: 52 Year
  Sex: Male
  Weight: 75 kg

DRUGS (5)
  1. ZOLEDRONIC ACID [Suspect]
     Active Substance: ZOLEDRONIC ACID
     Indication: Plasma cell myeloma
     Dosage: 8 MG;8 MG PER YEAR IV (4MG DAYS 1 AND 28 OF EACH YEAR)
     Route: 042
     Dates: start: 20190506
  2. LENALIDOMIDE [Suspect]
     Active Substance: LENALIDOMIDE
     Indication: Plasma cell myeloma
     Dosage: 25 MG, 1X/DAY
     Route: 048
     Dates: start: 20190506, end: 20200322
  3. LENALIDOMIDE [Suspect]
     Active Substance: LENALIDOMIDE
     Dosage: 10 MG, 1X/DAY
     Route: 048
     Dates: start: 20200323, end: 20220131
  4. VELCADE [Suspect]
     Active Substance: BORTEZOMIB
     Indication: Plasma cell myeloma
     Dosage: 2.5 MG, CYCLIC (2.5 MG, DAYS 1,4,8 AND 12 OF EACH CYCLE OF 28 DAYS)
     Route: 058
     Dates: start: 20190506, end: 20200305
  5. DARZALEX [Suspect]
     Active Substance: DARATUMUMAB
     Indication: Plasma cell myeloma
     Dosage: 1800 MG,1800 MG EVERY 28 DAYS
     Route: 058
     Dates: start: 20190506, end: 20220131

REACTIONS (4)
  - Pityriasis rubra pilaris [Recovered/Resolved]
  - Cutaneous T-cell lymphoma [Unknown]
  - Lichenoid keratosis [Recovered/Resolved]
  - Toxic skin eruption [Recovered/Resolved]

NARRATIVE: CASE EVENT DATE: 20200403
